FAERS Safety Report 4941334-1 (Version None)
Quarter: 2006Q1

REPORT INFORMATION
  Report Type: 
  Country: None (occurrence: None)
  Receive Date: 20060310
  Receipt Date: 20060301
  Transmission Date: 20060701
  Serious: Yes (Death, Life-Threatening, Hospitalization)
  Sender: FDA-Public Use
  Company Number: A0593868A

PATIENT
  Age: 79 Year
  Sex: Male

DRUGS (2)
  1. ARIXTRA [Suspect]
     Indication: DRUG USE FOR UNKNOWN INDICATION
     Dosage: SINGLE DOSE/SUBCUTANEOUS
     Route: 058
     Dates: start: 20060210, end: 20060210
  2. WARFARIN SODIUM [Concomitant]

REACTIONS (7)
  - ABDOMINAL PAIN LOWER [None]
  - HAEMATOCRIT DECREASED [None]
  - HAEMORRHAGE [None]
  - HYPOTENSION [None]
  - INTERNATIONAL NORMALISED RATIO DECREASED [None]
  - RETROPERITONEAL HAEMATOMA [None]
  - WHITE BLOOD CELL COUNT INCREASED [None]
